FAERS Safety Report 5075327-3 (Version None)
Quarter: 2006Q3

REPORT INFORMATION
  Report Type: 
  Country: None (occurrence: None)
  Receive Date: 20060804
  Receipt Date: 20060724
  Transmission Date: 20061208
  Serious: Yes (Hospitalization, Other)
  Sender: FDA-Public Use
  Company Number: 2006091068

PATIENT
  Age: 59 Year
  Sex: Female

DRUGS (2)
  1. FRONTAL XR (ALPRAZOLAM) [Suspect]
     Indication: ANXIETY
     Dosage: 1 MG (1 MG, 1 IN 1 D), ORAL
     Route: 048
  2. ALL OTHER THERAPEUTIC PRODUCTS (ALL OTHER THERAPEUTIC PRODUCTS) [Concomitant]

REACTIONS (12)
  - DIARRHOEA [None]
  - DIZZINESS [None]
  - FAECAL INCONTINENCE [None]
  - HEART RATE INCREASED [None]
  - MOUTH HAEMORRHAGE [None]
  - MUSCULOSKELETAL DISORDER [None]
  - MYOCARDIAL INFARCTION [None]
  - PANIC DISORDER [None]
  - SOMNOLENCE [None]
  - TUMOUR FLARE [None]
  - URINARY INCONTINENCE [None]
  - VOMITING [None]
